FAERS Safety Report 5840551-6 (Version None)
Quarter: 2008Q3

REPORT INFORMATION
  Report Type: 
  Country: None (occurrence: None)
  Receive Date: 20080731
  Receipt Date: 20080509
  Transmission Date: 20090109
  Serious: No
  Sender: FDA-Public Use
  Company Number: US200805002207

PATIENT
  Sex: Male

DRUGS (2)
  1. BYETTA [Suspect]
     Indication: TYPE 2 DIABETES MELLITUS
     Dosage: SUBCUTANEOUS
     Route: 058
  2. EXENATIDE UNK STRENGTH PEN,DISPOSABLE DEVICE (EXENATIDE PEN (UNKNOWN S [Concomitant]

REACTIONS (1)
  - ERECTILE DYSFUNCTION [None]
